FAERS Safety Report 8761608 (Version 2)
Quarter: 2012Q4

REPORT INFORMATION
  Report Type: Spontaneous
  Country: US (occurrence: None)
  Receive Date: 20120821
  Receipt Date: 20120918
  Transmission Date: 20130627
  Serious: Yes (Hospitalization)
  Sender: FDA-Public Use
  Company Number: AUR-APL-2010-00214

PATIENT
  Age: 81 Year
  Sex: Male
  Weight: 71.3 kg

DRUGS (16)
  1. SIMVASTATIN [Suspect]
     Indication: DRUG USE FOR UNKNOWN INDICATION
     Route: 048
     Dates: start: 20070503, end: 20091229
  2. DACOMITINIB [Suspect]
     Route: 048
     Dates: start: 20090825, end: 20091005
  3. DACOMITINIB [Suspect]
     Dosage: (reduced), continuous
     Route: 048
     Dates: end: 20091227
  4. AMLACTIN (AMMONIUM LACTATE) [Concomitant]
  5. ASPIRIN (ACETYLSALICYLIC ACID) [Concomitant]
  6. ATENOLOL (ATENOLOL) [Concomitant]
  7. LEXAPRO (ESCITALOPRAM OXALATE) [Concomitant]
  8. PRILOSEC (OMEPRAZOLE) [Concomitant]
  9. TRIAMCINOLONE (TRIAMCINOLONE) [Concomitant]
  10. NITROGLYCERIN (GLYCERYL TRINITRATE) [Concomitant]
  11. KEFLEX (CEFALEXIN) [Concomitant]
  12. INFLUENZA VACCINE (INFLUENZA VACCINE) [Concomitant]
  13. PNEUMOVAX (PNEUMOCOCCAL VACCINE) [Concomitant]
  14. MAGNESIUM SULFATE (MAGNESIUM SULFATE) [Concomitant]
  15. FRAGMIN (HEPARIN-FRACTION, SODIUM SALT) [Concomitant]
  16. LOMOTIL [Suspect]

REACTIONS (20)
  - Transaminases increased [None]
  - Asthenia [None]
  - Decreased appetite [None]
  - Dehydration [None]
  - Balance disorder [None]
  - Balance disorder [None]
  - Head injury [None]
  - Skin fissures [None]
  - Diarrhoea [None]
  - Pain in extremity [None]
  - Haemoglobin decreased [None]
  - Aspartate aminotransferase increased [None]
  - Alanine aminotransferase increased [None]
  - Electrocardiogram ST segment abnormal [None]
  - Serum ferritin increased [None]
  - Blood albumin decreased [None]
  - Cholelithiasis [None]
  - Pleural effusion [None]
  - Empyema [None]
  - Catheter culture positive [None]
